FAERS Safety Report 20076997 (Version 1)
Quarter: 2021Q4

REPORT INFORMATION
  Report Type: Spontaneous
  Country: US (occurrence: US)
  Receive Date: 20211116
  Receipt Date: 20211116
  Transmission Date: 20220304
  Serious: No
  Sender: FDA-Public Use
  Company Number: US-TAKEDA-2021TUS071263

PATIENT
  Sex: Female
  Weight: 75 kg

DRUGS (2)
  1. DEXILANT [Suspect]
     Active Substance: DEXLANSOPRAZOLE
     Indication: Gastrooesophageal reflux disease
     Dosage: 60 MILLIGRAM
     Route: 065
     Dates: start: 2008
  2. DEXILANT [Suspect]
     Active Substance: DEXLANSOPRAZOLE
     Indication: Hiatus hernia

REACTIONS (9)
  - Illness [Unknown]
  - Rhinorrhoea [Unknown]
  - Therapy interrupted [Unknown]
  - Extra dose administered [Unknown]
  - Eye disorder [Unknown]
  - Pruritus [Unknown]
  - Nasopharyngitis [Unknown]
  - Oropharyngeal pain [Unknown]
  - Hypersensitivity [Unknown]
